FAERS Safety Report 5820050-8 (Version None)
Quarter: 2008Q3

REPORT INFORMATION
  Report Type: 
  Country: None (occurrence: None)
  Receive Date: 20080711
  Receipt Date: 20080704
  Transmission Date: 20090109
  Serious: Yes (Death)
  Sender: FDA-Public Use
  Company Number: 200813701

PATIENT
  Age: 37 Year
  Sex: Female
  Weight: 130.6359 kg

DRUGS (3)
  1. HUMATE-P [Suspect]
     Indication: VON WILLEBRAND'S DISEASE
     Dosage: IV
     Route: 042
     Dates: start: 20080605, end: 20080605
  2. HUMATE-P [Suspect]
     Indication: VON WILLEBRAND'S DISEASE
     Dosage: IV
     Route: 042
     Dates: start: 20080606, end: 20080606
  3. HUMATE-P [Concomitant]

REACTIONS (15)
  - BODY TEMPERATURE INCREASED [None]
  - CATHETER RELATED INFECTION [None]
  - CULTURE POSITIVE [None]
  - CYANOSIS [None]
  - DYSPNOEA [None]
  - HYPERHIDROSIS [None]
  - INFUSION RELATED REACTION [None]
  - MUSCLE RIGIDITY [None]
  - MUSCLE SPASMS [None]
  - MUSCULOSKELETAL STIFFNESS [None]
  - SEPSIS [None]
  - SKIN DISCOLOURATION [None]
  - TREMOR [None]
  - URINARY TRACT INFECTION [None]
  - VOMITING [None]
